FAERS Safety Report 15837619 (Version 1)
Quarter: 2019Q1

REPORT INFORMATION
  Report Type: Spontaneous
  Country: US (occurrence: US)
  Receive Date: 20190117
  Receipt Date: 20190117
  Transmission Date: 20190417
  Serious: Yes (Other)
  Sender: FDA-Public Use
  Company Number: None

PATIENT
  Age: 56 Year
  Sex: Female
  Weight: 56 kg

DRUGS (2)
  1. FOSAPREPITANT DIMEGLUMINE. [Suspect]
     Active Substance: FOSAPREPITANT DIMEGLUMINE
     Indication: VOMITING
     Dosage: ?          OTHER FREQUENCY:BEFORE CHEMO;?
     Route: 040
     Dates: start: 20181101, end: 20181101
  2. FOSAPREPITANT DIMEGLUMINE. [Suspect]
     Active Substance: FOSAPREPITANT DIMEGLUMINE
     Indication: NAUSEA
     Dosage: ?          OTHER FREQUENCY:BEFORE CHEMO;?
     Route: 040
     Dates: start: 20181101, end: 20181101

REACTIONS (7)
  - Dyspnoea [None]
  - Flushing [None]
  - Musculoskeletal pain [None]
  - Hypertension [None]
  - Pain [None]
  - Infusion related reaction [None]
  - Back pain [None]

NARRATIVE: CASE EVENT DATE: 20181101
